FAERS Safety Report 7078558-6 (Version None)
Quarter: 2010Q4

REPORT INFORMATION
  Report Type: 
  Country: None (occurrence: None)
  Receive Date: 20101102
  Receipt Date: 20101025
  Transmission Date: 20110411
  Serious: Yes (Hospitalization)
  Sender: FDA-Public Use
  Company Number: US-JNJFOC-20100800632

PATIENT
  Age: 3 Year
  Sex: Male

DRUGS (2)
  1. CHILDREN'S MOTRIN [Suspect]
     Route: 065
  2. CHILDREN'S MOTRIN [Suspect]
     Indication: PYREXIA
     Route: 065

REACTIONS (2)
  - HAEMOLYTIC ANAEMIA [None]
  - PRODUCT QUALITY ISSUE [None]
